FAERS Safety Report 20183743 (Version 4)
Quarter: 2022Q1

REPORT INFORMATION
  Report Type: Report from Study
  Country: CN (occurrence: None)
  Receive Date: 20211214
  Receipt Date: 20220214
  Transmission Date: 20220423
  Serious: Yes (Death, Hospitalization)
  Sender: FDA-Public Use
  Company Number: CN-ROCHE-2968282

PATIENT
  Age: 42 Year
  Sex: Female
  Weight: 50 kg

DRUGS (34)
  1. RITUXIMAB [Suspect]
     Active Substance: RITUXIMAB
     Indication: Diffuse large B-cell lymphoma refractory
     Dosage: ON 03/NOV/2021, SHE RECEIVED MOST RECENT DOSE 562.5 MG OF INTRAVENOUS RITUXIMAB INFUSION, SOLUTION P
     Route: 041
     Dates: start: 20211014
  2. GEMCITABINE [Suspect]
     Active Substance: GEMCITABINE
     Indication: Diffuse large B-cell lymphoma refractory
     Dosage: ON 03/NOV/2021, SHE RECEIVED MOST RECENT DOSE 1500 MG OF INTRAVENOUS GEMCITABINE PRIOR TO AE AND SAE
     Route: 042
     Dates: start: 20211015
  3. OXALIPLATIN [Suspect]
     Active Substance: OXALIPLATIN
     Indication: Diffuse large B-cell lymphoma refractory
     Dosage: ON 03/NOV/2021, SHE RECEIVED MOST RECENT DOSE 150 MG OF INTRAVENOUS OXALIPLATIN PRIOR TO AE AND SAE.
     Route: 042
     Dates: start: 20211015
  4. DEXAMETHASONE [Concomitant]
     Active Substance: DEXAMETHASONE
     Dosage: THE PROTOCOL REQUIRES PRETREATMENT MEDICATION, GIVEN FOR PROPHYLAXIS :YES
     Route: 042
     Dates: start: 20211103, end: 20211103
  5. ACETAMINOPHEN [Concomitant]
     Active Substance: ACETAMINOPHEN
     Dosage: THE PROTOCOL REQUIRES PRETREATMENT MEDICATION, GIVEN FOR PROPHYLAXIS : YES
     Route: 048
     Dates: start: 20211103, end: 20211103
  6. DIPHENHYDRAMINE HYDROCHLORIDE [Concomitant]
     Active Substance: DIPHENHYDRAMINE HYDROCHLORIDE
     Dosage: THE PROTOCOL REQUIRES PRETREATMENT MEDICATION, GIVEN FOR PROPHYLAXIS :YES
     Route: 030
     Dates: start: 20211103, end: 20211103
  7. DIPHENHYDRAMINE HYDROCHLORIDE [Concomitant]
     Active Substance: DIPHENHYDRAMINE HYDROCHLORIDE
     Route: 042
     Dates: start: 20211103, end: 20211105
  8. METOCLOPRAMIDE [Concomitant]
     Active Substance: METOCLOPRAMIDE
     Route: 042
     Dates: start: 20211103, end: 20211105
  9. SODIUM BICARBONATE [Concomitant]
     Active Substance: SODIUM BICARBONATE
     Route: 042
     Dates: start: 20211103, end: 20211103
  10. SODIUM LACTATE RINGER^S [Concomitant]
     Route: 042
     Dates: start: 20211103, end: 20211103
  11. TROPISETRON [Concomitant]
     Active Substance: TROPISETRON
     Route: 042
     Dates: start: 20211103, end: 20211107
  12. CIMETIDINE [Concomitant]
     Active Substance: CIMETIDINE
     Route: 042
     Dates: start: 20211103, end: 20211107
  13. OMEPRAZOLE [Concomitant]
     Active Substance: OMEPRAZOLE
     Route: 042
     Dates: start: 20211103, end: 20211103
  14. OMEPRAZOLE [Concomitant]
     Active Substance: OMEPRAZOLE
     Route: 042
     Dates: start: 20211124, end: 20211124
  15. ALBUMIN HUMAN [Concomitant]
     Active Substance: ALBUMIN HUMAN
     Route: 042
     Dates: start: 20211103, end: 20211106
  16. ALBUMIN HUMAN [Concomitant]
     Active Substance: ALBUMIN HUMAN
     Route: 042
     Dates: start: 20211124, end: 20211124
  17. ALBUMIN HUMAN [Concomitant]
     Active Substance: ALBUMIN HUMAN
     Route: 042
     Dates: start: 20211125, end: 20211126
  18. LIDOCAINE [Concomitant]
     Active Substance: LIDOCAINE
     Route: 062
     Dates: start: 20211103, end: 20211103
  19. LIDOCAINE [Concomitant]
     Active Substance: LIDOCAINE
     Route: 062
     Dates: start: 20211124, end: 20211124
  20. FUROSEMIDE [Concomitant]
     Active Substance: FUROSEMIDE
     Indication: Polyuria
     Route: 042
     Dates: start: 20211104, end: 20211104
  21. FUROSEMIDE [Concomitant]
     Active Substance: FUROSEMIDE
     Route: 042
     Dates: start: 20211124, end: 20211124
  22. FUROSEMIDE [Concomitant]
     Active Substance: FUROSEMIDE
     Route: 042
     Dates: start: 20211124, end: 20211124
  23. FUROSEMIDE [Concomitant]
     Active Substance: FUROSEMIDE
     Route: 042
     Dates: start: 20211125, end: 20211125
  24. MECAPEGFILGRASTIM [Concomitant]
     Active Substance: MECAPEGFILGRASTIM
     Route: 062
     Dates: start: 20211104, end: 20211104
  25. METHYLPREDNISOLONE [Concomitant]
     Active Substance: METHYLPREDNISOLONE
     Route: 042
     Dates: start: 20211104, end: 20211107
  26. METHYLPREDNISOLONE [Concomitant]
     Active Substance: METHYLPREDNISOLONE
     Route: 042
     Dates: start: 20211126, end: 20211126
  27. GRANISETRON [Concomitant]
     Active Substance: GRANISETRON
     Route: 048
     Dates: start: 20211105, end: 20211110
  28. HYDROCORTISONE SODIUM SUCCINATE [Concomitant]
     Active Substance: HYDROCORTISONE SODIUM SUCCINATE
     Route: 042
     Dates: start: 20211103, end: 20211104
  29. HYDROCORTISONE SODIUM SUCCINATE [Concomitant]
     Active Substance: HYDROCORTISONE SODIUM SUCCINATE
     Route: 042
     Dates: start: 20211124, end: 20211124
  30. DESLANOSIDE [Concomitant]
     Active Substance: DESLANOSIDE
     Route: 042
     Dates: start: 20211124, end: 20211124
  31. INDOMETHACIN [Concomitant]
     Active Substance: INDOMETHACIN
     Route: 054
     Dates: start: 20211124, end: 20211124
  32. MOXIFLOXACIN HYDROCHLORIDE [Concomitant]
     Active Substance: MOXIFLOXACIN HYDROCHLORIDE
     Route: 042
     Dates: start: 20211125, end: 20211126
  33. POTASSIUM CHLORIDE [Concomitant]
     Active Substance: POTASSIUM CHLORIDE
     Indication: Nutritional supplementation
     Route: 042
     Dates: start: 20211125, end: 20211125
  34. DOPAMINE [Concomitant]
     Active Substance: DOPAMINE HYDROCHLORIDE
     Indication: Blood pressure increased
     Route: 042
     Dates: start: 20211125, end: 20211125

REACTIONS (2)
  - Pneumonia [Fatal]
  - Anaemia [Not Recovered/Not Resolved]

NARRATIVE: CASE EVENT DATE: 20211124
